FAERS Safety Report 6713217-8 (Version None)
Quarter: 2010Q2

REPORT INFORMATION
  Report Type: 
  Country: None (occurrence: None)
  Receive Date: 20100503
  Receipt Date: 20100309
  Transmission Date: 20101027
  Serious: Yes (Other)
  Sender: FDA-Public Use
  Company Number: SPV1-2010-00327

PATIENT
  Age: 12 Year
  Sex: Male
  Weight: 35.6 kg

DRUGS (4)
  1. GUANFACINE HYDROCHLORIDE OR PLACEBO(503 (GUANFACINE HY [Suspect]
     Indication: ATTENTION DEFICIT/HYPERACTIVITY DISORDER
     Dosage: 1X/DAY:QD, ORAL, 4 MG, 1X/DAY:QD, ORAL; 1X/DAY:QD, ORAL
     Route: 048
     Dates: start: 20100128, end: 20100215
  2. GUANFACINE HYDROCHLORIDE OR PLACEBO(503 (GUANFACINE HY [Suspect]
     Indication: ATTENTION DEFICIT/HYPERACTIVITY DISORDER
     Dosage: 1X/DAY:QD, ORAL, 4 MG, 1X/DAY:QD, ORAL; 1X/DAY:QD, ORAL
     Route: 048
     Dates: start: 20100216, end: 20100223
  3. GUANFACINE HYDROCHLORIDE OR PLACEBO(503 (GUANFACINE HY [Suspect]
     Indication: ATTENTION DEFICIT/HYPERACTIVITY DISORDER
     Dosage: 1X/DAY:QD, ORAL, 4 MG, 1X/DAY:QD, ORAL; 1X/DAY:QD, ORAL
     Route: 048
     Dates: start: 20100224, end: 20100305
  4. NASONEX [Concomitant]

REACTIONS (1)
  - SYNCOPE [None]
